FAERS Safety Report 9702950 (Version 3)
Quarter: 2014Q1

REPORT INFORMATION
  Report Type: Not Available
  Country: US (occurrence: US)
  Receive Date: 20131121
  Receipt Date: 20140306
  Transmission Date: 20141002
  Serious: Yes (Hospitalization, Other)
  Sender: FDA-Public Use
  Company Number: US-LUPIN PHARMACEUTICALS INC.-E2B_00001453

PATIENT
  Age: 38 Year
  Sex: Female
  Weight: 131.66 kg

DRUGS (2)
  1. LISINOPRIL AND HYDROCHLOROTHIAZIDE TABLETS USP 20 MG/12.5 MG [Suspect]
     Indication: BLOOD PRESSURE ABNORMAL
     Dates: start: 201305, end: 201305
  2. LISINOPRIL AND HYDROCHLOROTHIAZIDE TABLETS USP 20 MG/12.5 MG [Suspect]
     Dates: start: 20130605

REACTIONS (11)
  - Eye haemorrhage [Recovered/Resolved]
  - Urinary incontinence [Recovered/Resolved]
  - Helicobacter infection [Unknown]
  - Cough [Not Recovered/Not Resolved]
  - Eye pain [Recovered/Resolved]
  - Eye pruritus [Not Recovered/Not Resolved]
  - Panic attack [Recovered/Resolved]
  - Visual impairment [Not Recovered/Not Resolved]
  - Palpitations [Recovered/Resolved]
  - Dry mouth [Not Recovered/Not Resolved]
  - Vision blurred [Not Recovered/Not Resolved]
